FAERS Safety Report 21213637 (Version 1)
Quarter: 2022Q3

REPORT INFORMATION
  Report Type: Spontaneous
  Country: RU (occurrence: RU)
  Receive Date: 20220816
  Receipt Date: 20220816
  Transmission Date: 20221027
  Serious: Yes (Other)
  Sender: FDA-Public Use
  Company Number: RU-AMGEN-RUSSP2022138511

PATIENT
  Age: 14 Year
  Sex: Male

DRUGS (5)
  1. XGEVA [Suspect]
     Active Substance: DENOSUMAB
     Indication: Fibrous dysplasia of jaw
     Dosage: 1.5 MILLIGRAM/KILOGRAM WITH LOADING DOSES ON DAYS 8 AND 15
     Route: 065
  2. XGEVA [Suspect]
     Active Substance: DENOSUMAB
     Indication: Giant cell epulis
  3. XGEVA [Suspect]
     Active Substance: DENOSUMAB
     Indication: Off label use
  4. CALCIUM [Concomitant]
     Active Substance: CALCIUM
  5. VITAMIN D [Concomitant]
     Active Substance: VITAMIN D NOS
     Dosage: 3000 INTERNATIONAL UNIT/DAY

REACTIONS (2)
  - Seizure [Unknown]
  - Off label use [Unknown]
